FAERS Safety Report 14123059 (Version 7)
Quarter: 2018Q1

REPORT INFORMATION
  Report Type: Report from Study
  Country: None (occurrence: GB)
  Receive Date: 20171025
  Receipt Date: 20180201
  Transmission Date: 20180508
  Serious: Yes (Hospitalization, Other)
  Sender: FDA-Public Use
  Company Number: GB-ABBVIE-17K-167-2129201-00

PATIENT
  Age: 73 Year
  Sex: Female

DRUGS (2)
  1. DUODOPA [Suspect]
     Active Substance: CARBIDOPA\LEVODOPA
     Indication: PARKINSON^S DISEASE
     Dosage: 100ML CASSETTE, DOSE INCREASED TO CONCENTRATION RATE 3.0MLS/HR.
     Route: 050
     Dates: start: 2017, end: 2017
  2. DUODOPA [Suspect]
     Active Substance: CARBIDOPA\LEVODOPA
     Dosage: 1 CASSETTE, MD: 9.0ML, INCREASED TO 10ML, CR: 2.6M, INCREASED TO 2.8ML, ED:?1.5ML.
     Route: 050
     Dates: start: 2017

REACTIONS (21)
  - Fine motor skill dysfunction [Unknown]
  - Parkinsonism [Unknown]
  - Depressed mood [Unknown]
  - Mobility decreased [Unknown]
  - Dystonia [Unknown]
  - Weight decreased [Unknown]
  - Stoma site discharge [Unknown]
  - Gait disturbance [Unknown]
  - Drug ineffective [Unknown]
  - Device alarm issue [Not Recovered/Not Resolved]
  - Device occlusion [Unknown]
  - Wrong technique in device usage process [Unknown]
  - Feeling abnormal [Unknown]
  - Device issue [Unknown]
  - Movement disorder [Unknown]
  - On and off phenomenon [Unknown]
  - Gait inability [Unknown]
  - Emotional distress [Unknown]
  - Freezing phenomenon [Unknown]
  - Reduced facial expression [Unknown]
  - Abdominal discomfort [Unknown]

NARRATIVE: CASE EVENT DATE: 2017
